FAERS Safety Report 20883074 (Version 2)
Quarter: 2022Q2

REPORT INFORMATION
  Report Type: Spontaneous
  Country: CA (occurrence: CA)
  Receive Date: 20220527
  Receipt Date: 20220603
  Transmission Date: 20220720
  Serious: Yes (Death, Other)
  Sender: FDA-Public Use
  Company Number: CA-BAUSCH-BL-2022-012986

PATIENT
  Age: 62 Year
  Sex: Female

DRUGS (16)
  1. FLUOROURACIL [Suspect]
     Active Substance: FLUOROURACIL
     Indication: Colorectal cancer metastatic
     Route: 065
  2. BEVACIZUMAB [Suspect]
     Active Substance: BEVACIZUMAB
     Indication: Colorectal cancer metastatic
     Route: 042
  3. BEVACIZUMAB [Suspect]
     Active Substance: BEVACIZUMAB
     Route: 042
  4. BEVACIZUMAB [Suspect]
     Active Substance: BEVACIZUMAB
     Route: 042
  5. BEVACIZUMAB [Suspect]
     Active Substance: BEVACIZUMAB
     Route: 042
  6. LEUCOVORIN CALCIUM [Suspect]
     Active Substance: LEUCOVORIN CALCIUM
     Indication: Colorectal cancer metastatic
     Route: 065
  7. IRINOTECAN HYDROCHLORIDE [Suspect]
     Active Substance: IRINOTECAN HYDROCHLORIDE
     Indication: Colorectal cancer metastatic
     Route: 065
  8. IRINOTECAN HYDROCHLORIDE [Suspect]
     Active Substance: IRINOTECAN HYDROCHLORIDE
     Dosage: SOLUTION INTRAVENOUS
     Route: 042
  9. PANITUMUMAB [Suspect]
     Active Substance: PANITUMUMAB
     Indication: Product used for unknown indication
     Route: 065
  10. PANITUMUMAB [Suspect]
     Active Substance: PANITUMUMAB
     Route: 042
  11. PANITUMUMAB [Suspect]
     Active Substance: PANITUMUMAB
     Route: 065
  12. PANITUMUMAB [Suspect]
     Active Substance: PANITUMUMAB
     Route: 065
  13. PANITUMUMAB [Suspect]
     Active Substance: PANITUMUMAB
     Route: 065
  14. LEUCOVORIN [Suspect]
     Active Substance: LEUCOVORIN
     Indication: Colorectal cancer metastatic
     Route: 065
  15. IRINOTECAN [Suspect]
     Active Substance: IRINOTECAN
     Indication: Colorectal cancer metastatic
     Route: 065
  16. IRINOTECAN [Suspect]
     Active Substance: IRINOTECAN
     Route: 042

REACTIONS (3)
  - Neoplasm progression [Fatal]
  - Disease progression [Fatal]
  - Malignant neoplasm progression [Fatal]
